FAERS Safety Report 13461450 (Version 3)
Quarter: 2017Q4

REPORT INFORMATION
  Report Type: Spontaneous
  Country: JP (occurrence: JP)
  Receive Date: 20170420
  Receipt Date: 20171201
  Transmission Date: 20180320
  Serious: Yes (Other)
  Sender: FDA-Public Use
  Company Number: JP-VIIV HEALTHCARE LIMITED-JP2017JPN054434

PATIENT
  Age: 68 Year
  Sex: Female

DRUGS (7)
  1. ZEFIX [Suspect]
     Active Substance: LAMIVUDINE
     Dosage: UNK
     Dates: start: 200406
  2. HEPSERA [Suspect]
     Active Substance: ADEFOVIR DIPIVOXIL
     Dosage: 10 MG, 1D
     Route: 048
     Dates: start: 201001, end: 201604
  3. ZEFIX [Suspect]
     Active Substance: LAMIVUDINE
     Dosage: UNK
     Dates: start: 200808, end: 2009
  4. ZEFIX [Suspect]
     Active Substance: LAMIVUDINE
     Dosage: UNK
     Route: 048
     Dates: start: 201001
  5. TENOZET [Suspect]
     Active Substance: TENOFOVIR DISOPROXIL FUMARATE
     Dosage: UNK
     Route: 048
     Dates: start: 201604, end: 201703
  6. HEPSERA [Suspect]
     Active Substance: ADEFOVIR DIPIVOXIL
     Dosage: UNK
     Route: 048
     Dates: start: 200808, end: 2009
  7. ZEFIX [Suspect]
     Active Substance: LAMIVUDINE
     Dosage: UNK
     Dates: start: 200503

REACTIONS (3)
  - Renal impairment [Recovering/Resolving]
  - Blood creatinine increased [Not Recovered/Not Resolved]
  - Hypophosphataemia [Recovering/Resolving]

NARRATIVE: CASE EVENT DATE: 201407
